FAERS Safety Report 6750945-2 (Version None)
Quarter: 2010Q2

REPORT INFORMATION
  Report Type: 
  Country: None (occurrence: None)
  Receive Date: 20100602
  Receipt Date: 20100531
  Transmission Date: 20101027
  Serious: Yes (Death, Hospitalization)
  Sender: FDA-Public Use
  Company Number: DE-EISAI INC.-E2090-01198-SPO-DE

PATIENT
  Age: 41 Year
  Sex: Male

DRUGS (2)
  1. ZONEGRAN [Suspect]
     Dosage: UNKNOWN
     Route: 048
     Dates: start: 20080501, end: 20100501
  2. ANTIBIOTICS [Interacting]
     Dosage: UNKNOWN
     Dates: start: 20100401

REACTIONS (3)
  - DRUG INTERACTION [None]
  - PYELONEPHRITIS [None]
  - SKIN REACTION [None]
